FAERS Safety Report 7487963-5 (Version None)
Quarter: 2011Q2

REPORT INFORMATION
  Report Type: 
  Country: None (occurrence: None)
  Receive Date: 20110518
  Receipt Date: 20110504
  Transmission Date: 20111010
  Serious: Yes (Hospitalization, Other)
  Sender: FDA-Public Use
  Company Number: CA-JNJFOC-20100607542

PATIENT
  Sex: Male
  Weight: 72 kg

DRUGS (16)
  1. REMICADE [Suspect]
     Route: 042
     Dates: start: 20091222
  2. REMICADE [Suspect]
     Route: 042
     Dates: start: 20100430
  3. GOUT MEDICATIONS [Interacting]
     Indication: GOUT
     Dates: start: 20090101
  4. REMICADE [Suspect]
     Route: 042
     Dates: start: 20090116
  5. REMICADE [Suspect]
     Route: 042
     Dates: start: 20090312
  6. REMICADE [Suspect]
     Route: 042
     Dates: start: 20090511
  7. REMICADE [Suspect]
     Route: 042
     Dates: start: 20090826
  8. REMICADE [Suspect]
     Indication: CROHN'S DISEASE
     Route: 042
     Dates: start: 20080426
  9. REMICADE [Suspect]
     Route: 042
     Dates: start: 20100216
  10. REMICADE [Suspect]
     Route: 042
     Dates: start: 20091027
  11. REMICADE [Suspect]
     Route: 042
     Dates: start: 20081121
  12. REMICADE [Suspect]
     Route: 042
     Dates: start: 20090702
  13. REMICADE [Suspect]
     Route: 042
     Dates: start: 20080529
  14. REMICADE [Suspect]
     Route: 042
     Dates: start: 20080721
  15. REMICADE [Suspect]
     Route: 042
     Dates: start: 20080926
  16. REMICADE [Suspect]
     Route: 042
     Dates: start: 20080415

REACTIONS (4)
  - GOUT [None]
  - CROHN'S DISEASE [None]
  - DRUG INTERACTION [None]
  - DRUG INEFFECTIVE [None]
